FAERS Safety Report 17994199 (Version 2)
Quarter: 2020Q3

REPORT INFORMATION
  Report Type: Spontaneous
  Country: US (occurrence: US)
  Receive Date: 20200708
  Receipt Date: 20200724
  Transmission Date: 20201103
  Serious: Yes (Hospitalization)
  Sender: FDA-Public Use
  Company Number: US-ASTRAZENECA-2020SE83976

PATIENT
  Age: 65 Year
  Sex: Male
  Weight: 50.3 kg

DRUGS (1)
  1. BEVESPI AEROSPHERE [Suspect]
     Active Substance: FORMOTEROL FUMARATE\GLYCOPYRROLATE
     Indication: CHRONIC OBSTRUCTIVE PULMONARY DISEASE
     Dosage: 9MCG/4.8MCG, TWO PUFFS TWO TIMES A DAY
     Route: 055
     Dates: start: 2020

REACTIONS (7)
  - Post procedural complication [Recovering/Resolving]
  - Product use issue [Unknown]
  - Appendix disorder [Recovering/Resolving]
  - Weight increased [Unknown]
  - Wrong technique in device usage process [Unknown]
  - Intentional device misuse [Unknown]
  - Device issue [Unknown]

NARRATIVE: CASE EVENT DATE: 2020
